FAERS Safety Report 12901867 (Version 2)
Quarter: 2017Q1

REPORT INFORMATION
  Report Type: Spontaneous
  Country: FR (occurrence: FR)
  Receive Date: 20161102
  Receipt Date: 20170223
  Transmission Date: 20170428
  Serious: Yes (Hospitalization)
  Sender: FDA-Public Use
  Company Number: FR-009507513-1610FRA013835

PATIENT
  Age: 61 Year
  Sex: Female

DRUGS (6)
  1. ALDACTONE [Concomitant]
     Active Substance: SPIRONOLACTONE
     Dosage: UNK
     Dates: start: 20161004, end: 20161012
  2. PROGLICEM [Suspect]
     Active Substance: DIAZOXIDE
     Dosage: 200 MG, TWICE A DAY
     Route: 048
     Dates: start: 20161005, end: 20161010
  3. PROGLICEM [Suspect]
     Active Substance: DIAZOXIDE
     Dosage: 300 MG, QD
     Route: 048
     Dates: start: 20161011, end: 20161012
  4. PROGLICEM [Suspect]
     Active Substance: DIAZOXIDE
     Dosage: 200 MG, FOUR TIMES A DAY
     Route: 048
     Dates: start: 20161004, end: 20161005
  5. PRIMPERAN [Concomitant]
     Active Substance: METOCLOPRAMIDE HYDROCHLORIDE
     Dosage: UNK
     Dates: start: 20161004, end: 20161012
  6. PROGLICEM [Suspect]
     Active Substance: DIAZOXIDE
     Indication: HYPOGLYCAEMIA
     Dosage: 15 MG/KG/DAY, 100 MG WITH PROGRESSIVE INCREASED TO 200 MG FOUR TIMES A DAY, EFFECTIVE 04OCT2016
     Route: 048
     Dates: start: 20160930, end: 20161003

REACTIONS (1)
  - Thrombocytopenia [Recovered/Resolved]

NARRATIVE: CASE EVENT DATE: 20161012
